FAERS Safety Report 7466821-6 (Version None)
Quarter: 2011Q2

REPORT INFORMATION
  Report Type: 
  Country: None (occurrence: None)
  Receive Date: 20110509
  Receipt Date: 20110426
  Transmission Date: 20111010
  Serious: Yes (Hospitalization, Other)
  Sender: FDA-Public Use
  Company Number: US-MERCK-1104USA00408

PATIENT
  Age: 77 Year
  Sex: Female

DRUGS (9)
  1. CALCIUM (UNSPECIFIED) [Concomitant]
     Route: 048
  2. HYZAAR [Suspect]
     Route: 048
     Dates: end: 20110101
  3. MAGNESIUM OXIDE [Concomitant]
     Route: 048
  4. COZAAR [Suspect]
     Indication: HYPERTENSION
     Route: 048
     Dates: start: 20110308
  5. LOPRESSOR [Concomitant]
     Route: 048
  6. CADUET [Concomitant]
     Route: 065
  7. METAMUCIL-2 [Concomitant]
     Route: 048
  8. TEKTURNA [Concomitant]
     Route: 065
  9. LIPITOR [Concomitant]
     Route: 048

REACTIONS (4)
  - ABDOMINAL PAIN [None]
  - DIARRHOEA [None]
  - BLOOD PRESSURE FLUCTUATION [None]
  - NAUSEA [None]
